FAERS Safety Report 6818767-1 (Version None)
Quarter: 2010Q3

REPORT INFORMATION
  Report Type: 
  Country: None (occurrence: None)
  Receive Date: 20100701
  Receipt Date: 20100618
  Transmission Date: 20110219
  Serious: Yes (Disabling)
  Sender: FDA-Public Use
  Company Number: 2010SP033594

PATIENT
  Age: 23 Year
  Sex: Female

DRUGS (2)
  1. IMPLANON [Suspect]
     Indication: CONTRACEPTION
     Dates: start: 20080418
  2. DARVOCET [Concomitant]

REACTIONS (6)
  - ANAEMIA [None]
  - BRAIN INJURY [None]
  - HEADACHE [None]
  - MENORRHAGIA [None]
  - MIGRAINE [None]
  - VISUAL ACUITY REDUCED [None]
